FAERS Safety Report 17008139 (Version 3)
Quarter: 2020Q1

REPORT INFORMATION
  Report Type: Not Available
  Country: US (occurrence: US)
  Receive Date: 20191108
  Receipt Date: 20200115
  Transmission Date: 20200409
  Serious: No
  Sender: FDA-Public Use
  Company Number: US-NEUROCRINE BIOSCIENCES INC.-2019NBI03229

PATIENT
  Sex: Male

DRUGS (2)
  1. INGREZZA [Suspect]
     Active Substance: VALBENAZINE
     Route: 048
     Dates: start: 2019
  2. INGREZZA [Suspect]
     Active Substance: VALBENAZINE
     Indication: TARDIVE DYSKINESIA
     Route: 048
     Dates: start: 20190718, end: 2019

REACTIONS (6)
  - Hunger [Unknown]
  - Tooth fracture [Unknown]
  - Psychomotor hyperactivity [Unknown]
  - Accidental overdose [Unknown]
  - Tardive dyskinesia [Unknown]
  - Nausea [Unknown]

NARRATIVE: CASE EVENT DATE: 2019
